FAERS Safety Report 9744017 (Version 3)
Quarter: 2014Q1

REPORT INFORMATION
  Report Type: Report from Study
  Country: AU (occurrence: AU)
  Receive Date: 20131210
  Receipt Date: 20140307
  Transmission Date: 20141002
  Serious: Yes (Other)
  Sender: FDA-Public Use
  Company Number: AU-GLAXOSMITHKLINE-A1049908B

PATIENT
  Age: 63 Year
  Sex: Female
  Weight: 91 kg

DRUGS (5)
  1. GSK2110183 [Suspect]
     Indication: PLASMA CELL MYELOMA
     Dosage: 150MG PER DAY
     Route: 048
     Dates: start: 20130917, end: 20131119
  2. BORTEZOMIB [Suspect]
     Indication: PLASMA CELL MYELOMA
     Dosage: 1.3MGM2 TWO TIMES PER WEEK
     Route: 058
     Dates: start: 20130917, end: 20131119
  3. DEXAMETHASONE [Suspect]
     Indication: PLASMA CELL MYELOMA
     Dosage: 40MG TWO TIMES PER WEEK
     Route: 048
     Dates: start: 20130917, end: 20131119
  4. VALTREX [Suspect]
     Indication: ANTIVIRAL PROPHYLAXIS
     Dosage: 500MG TWICE PER DAY
     Route: 048
     Dates: start: 20130917, end: 20131119
  5. METOPROLOL [Concomitant]
     Indication: PRODUCT USED FOR UNKNOWN INDICATION
     Dosage: 25MG TWICE PER DAY

REACTIONS (3)
  - Gamma-glutamyltransferase increased [Recovering/Resolving]
  - Blood alkaline phosphatase increased [Recovering/Resolving]
  - Alanine aminotransferase increased [Recovered/Resolved]
